FAERS Safety Report 5717340-6 (Version None)
Quarter: 2008Q2

REPORT INFORMATION
  Report Type: 
  Country: None (occurrence: None)
  Receive Date: 20080424
  Receipt Date: 20080424
  Transmission Date: 20081010
  Serious: Yes (Life-Threatening)
  Sender: FDA-Public Use
  Company Number: None

PATIENT
  Sex: Female
  Weight: 79.3795 kg

DRUGS (1)
  1. LYRICA [Suspect]
     Indication: NEURALGIA
     Dosage: 1 CAPSULE 2 DAILY PO
     Route: 048
     Dates: start: 20080415, end: 20080420

REACTIONS (2)
  - DEPRESSED MOOD [None]
  - THINKING ABNORMAL [None]
